FAERS Safety Report 25184937 (Version 1)
Quarter: 2025Q2

REPORT INFORMATION
  Report Type: Report from Study
  Country: GB (occurrence: GB)
  Receive Date: 20250410
  Receipt Date: 20250410
  Transmission Date: 20250717
  Serious: Yes (Other)
  Sender: ALIMERA
  Company Number: GB-ALIMERA SCIENCES LIMITED-GB-IL-2016-002629

PATIENT
  Age: 53 Year
  Sex: Female

DRUGS (4)
  1. ILUVIEN [Suspect]
     Active Substance: FLUOCINOLONE ACETONIDE
     Indication: Diabetic retinal oedema
     Dosage: 0.25 MICROGRAM, QD-RIGHT EYE
     Route: 031
     Dates: start: 20140626
  2. ILUVIEN [Suspect]
     Active Substance: FLUOCINOLONE ACETONIDE
     Dosage: 0.25 MICROGRAM, QD-LEFT EYE
     Route: 031
     Dates: start: 20140922
  3. INSULIN NOS [Concomitant]
     Active Substance: INSULIN NOS
     Indication: Diabetes mellitus
     Dates: start: 19880101
  4. AVASTIN [Concomitant]
     Active Substance: BEVACIZUMAB
     Indication: Macular oedema
     Dates: start: 20151209, end: 20151209

REACTIONS (2)
  - Ciliary body operation [Recovered/Resolved]
  - Intraocular pressure increased [Not Recovered/Not Resolved]

NARRATIVE: CASE EVENT DATE: 20150703
